FAERS Safety Report 11820249 (Version 5)
Quarter: 2016Q2

REPORT INFORMATION
  Report Type: Report from Study
  Country: DE (occurrence: DE)
  Receive Date: 20151210
  Receipt Date: 20160629
  Transmission Date: 20160815
  Serious: Yes (Death, Hospitalization)
  Sender: FDA-Public Use
  Company Number: DE-ROCHE-1674458

PATIENT
  Age: 60 Year
  Sex: Female
  Weight: 44 kg

DRUGS (16)
  1. OBINUTUZUMAB [Suspect]
     Active Substance: OBINUTUZUMAB
     Indication: CHRONIC LYMPHOCYTIC LEUKAEMIA
     Dosage: MOST RECENT DOSE PRIOR TO SAE: 17/NOV/2015?MOST RECENT DOSE PRIOR TO SECOND EPISODE OF CMV ESOPHAGIT
     Route: 042
     Dates: start: 20150921
  2. BENDAMUSTINE [Suspect]
     Active Substance: BENDAMUSTINE
     Indication: CHRONIC LYMPHOCYTIC LEUKAEMIA
     Route: 042
     Dates: start: 20150720, end: 20150825
  3. RAMIPRIL. [Concomitant]
     Active Substance: RAMIPRIL
     Route: 065
  4. BRIMONIDINE [Concomitant]
     Active Substance: BRIMONIDINE TARTRATE
     Dosage: 2 DROPS
     Route: 061
  5. DORZOLAMIDE [Concomitant]
     Active Substance: DORZOLAMIDE
     Route: 065
     Dates: start: 2015
  6. IMMUNOGLOBULIN [Concomitant]
     Active Substance: HUMAN IMMUNOGLOBULIN G
     Route: 042
  7. RIMEXOLONE [Concomitant]
     Active Substance: RIMEXOLONE
     Dosage: 2 DROPS
     Route: 061
  8. VENETOCLAX [Suspect]
     Active Substance: VENETOCLAX
     Indication: CHRONIC LYMPHOCYTIC LEUKAEMIA
     Dosage: MOST RECENT DOSE PRIOR TO SAE: 03/DEC/2015 400 MG ?MOST RECENT DOSE PRIOR TO SECOND EPISODE OF CMV E
     Route: 048
     Dates: start: 20151027
  9. RAMIPRIL. [Concomitant]
     Active Substance: RAMIPRIL
     Route: 048
     Dates: start: 20151207
  10. VALGANCICLOVIR. [Concomitant]
     Active Substance: VALGANCICLOVIR
     Route: 048
     Dates: start: 20151207, end: 20160108
  11. DEXAMETHASONE. [Concomitant]
     Active Substance: DEXAMETHASONE
     Route: 048
     Dates: start: 2015
  12. DORZOLAMIDE [Concomitant]
     Active Substance: DORZOLAMIDE
     Dosage: 2 DROPS
     Route: 061
  13. PANTOPRAZOLE [Concomitant]
     Active Substance: PANTOPRAZOLE SODIUM
     Route: 048
     Dates: start: 2015
  14. ALLOPURINOL. [Concomitant]
     Active Substance: ALLOPURINOL
     Route: 048
     Dates: start: 20151016
  15. RIMEXOLONE [Concomitant]
     Active Substance: RIMEXOLONE
     Route: 065
     Dates: start: 2015
  16. BRIMONIDINE [Concomitant]
     Active Substance: BRIMONIDINE TARTRATE
     Dosage: 2 MG/ML
     Route: 065
     Dates: start: 2015

REACTIONS (2)
  - Cytomegalovirus oesophagitis [Not Recovered/Not Resolved]
  - Sepsis [Fatal]

NARRATIVE: CASE EVENT DATE: 20151207
